FAERS Safety Report 6884578-4 (Version None)
Quarter: 2010Q3

REPORT INFORMATION
  Report Type: 
  Country: None (occurrence: None)
  Receive Date: 20100727
  Receipt Date: 20100715
  Transmission Date: 20110219
  Serious: Yes (Other)
  Sender: FDA-Public Use
  Company Number: 635884

PATIENT
  Age: 51 Year
  Sex: Female
  Weight: 69 kg

DRUGS (7)
  1. PRECEDEX [Suspect]
     Indication: SEDATIVE THERAPY
     Dosage: .2 UG/KG MICROGRAM(S) / KILOGRAM, (1 HOUR)
     Route: 042
     Dates: start: 20080521, end: 20080521
  2. MIDAZOLAM HCL [Concomitant]
  3. NALBUPHINE HYDROCHLORIDE [Concomitant]
  4. HYDROXYZINE HYDROCHLORIDE [Concomitant]
  5. DESFLURANE [Concomitant]
  6. PROPOFOL [Concomitant]
  7. ROCURONIUM BROMIDE [Concomitant]

REACTIONS (2)
  - BRADYCARDIA [None]
  - ELECTROCARDIOGRAM ST SEGMENT DEPRESSION [None]
